FAERS Safety Report 9345862 (Version 1)
Quarter: 2013Q2

REPORT INFORMATION
  Report Type: Spontaneous
  Country: US (occurrence: US)
  Receive Date: 20130613
  Receipt Date: 20130613
  Transmission Date: 20140414
  Serious: Yes (Hospitalization)
  Sender: FDA-Public Use
  Company Number: US-PFIZER INC-2013175697

PATIENT
  Age: 67 Year
  Sex: Female
  Weight: 73.47 kg

DRUGS (3)
  1. SUTENT [Suspect]
     Indication: RENAL CELL CARCINOMA
     Dosage: 50 MG, 1X/DAY
     Route: 048
     Dates: start: 201305
  2. DILANTIN [Concomitant]
     Indication: PROPHYLAXIS
     Dosage: 100 MG, 3X/DAY
  3. MEGACE [Concomitant]
     Indication: APPETITE DISORDER
     Dosage: 100 MG, 4X/DAY

REACTIONS (3)
  - Dry mouth [Recovering/Resolving]
  - Dehydration [Recovering/Resolving]
  - Hypophagia [Recovering/Resolving]
